FAERS Safety Report 19825538 (Version 1)
Quarter: 2021Q3

REPORT INFORMATION
  Report Type: Report from Study
  Country: JP (occurrence: JP)
  Receive Date: 20210913
  Receipt Date: 20210913
  Transmission Date: 20211014
  Serious: Yes (Hospitalization, Other)
  Sender: FDA-Public Use
  Company Number: JP-PFIZER INC-202101185050

PATIENT
  Age: 8 Month
  Sex: Male
  Weight: 12.9 kg

DRUGS (6)
  1. DAIPHEN [Concomitant]
     Active Substance: SULFAMETHOXAZOLE\TRIMETHOPRIM
     Indication: INFECTION PROPHYLAXIS
     Dosage: 0.1 G, 2X/DAY (0.1 GM,12 HR)
     Route: 048
     Dates: start: 20210420
  2. BIOFERMIN [LACTOMIN] [Concomitant]
     Active Substance: DIETARY SUPPLEMENT\PROBIOTICS
     Dosage: UNK
     Route: 048
  3. LACTULOSE. [Concomitant]
     Active Substance: LACTULOSE
     Dosage: 2 ML,8 HR
     Route: 065
     Dates: start: 20210720
  4. SIROLIMUS. [Suspect]
     Active Substance: SIROLIMUS
     Indication: LYMPHANGIOMA
     Dosage: 0.14 MG, 1X/DAY (AFTER LUNCH)
     Route: 048
     Dates: start: 20210420
  5. THYRADIN S [Concomitant]
     Active Substance: LEVOTHYROXINE SODIUM
     Dosage: 25 UG, 1X/DAY
     Route: 048
     Dates: start: 20210105
  6. URSO [Concomitant]
     Active Substance: URSODIOL
     Dosage: 13 MG, 3X/DAY (13 MG,8 HR)
     Route: 048
     Dates: start: 20210427

REACTIONS (1)
  - Cellulitis [Recovered/Resolved]

NARRATIVE: CASE EVENT DATE: 20210818
